FAERS Safety Report 9961040 (Version 1)
Quarter: 2014Q1

REPORT INFORMATION
  Report Type: Spontaneous
  Country: US (occurrence: US)
  Receive Date: 20140305
  Receipt Date: 20140305
  Transmission Date: 20141002
  Serious: No
  Sender: FDA-Public Use
  Company Number: US-ABBVIE-13P-163-1109694-00

PATIENT
  Age: 35 Year
  Sex: Male
  Weight: 99.88 kg

DRUGS (3)
  1. HUMIRA [Suspect]
     Indication: ANKYLOSING SPONDYLITIS
     Dates: start: 2009, end: 2011
  2. HUMIRA [Suspect]
     Dates: start: 2011, end: 2012
  3. VICODIN [Concomitant]
     Indication: PAIN

REACTIONS (3)
  - Expired drug administered [Recovered/Resolved]
  - Ankylosing spondylitis [Not Recovered/Not Resolved]
  - Arthralgia [Not Recovered/Not Resolved]
